FAERS Safety Report 8321484-2 (Version None)
Quarter: 2012Q2

REPORT INFORMATION
  Report Type: 
  Country: None (occurrence: None)
  Receive Date: 20120430
  Receipt Date: 20120430
  Transmission Date: 20120825
  Serious: Yes (Other)
  Sender: FDA-Public Use
  Company Number: None

PATIENT
  Age: 46 Year
  Sex: Female
  Weight: 84.821 kg

DRUGS (1)
  1. FENTANYL-100 [Suspect]
     Indication: PAIN MANAGEMENT
     Dosage: 30 DAY SUPPLY ONE PATCH
     Route: 061
     Dates: start: 20120213, end: 20120424

REACTIONS (6)
  - SYNCOPE [None]
  - PRODUCT PACKAGING QUANTITY ISSUE [None]
  - MALAISE [None]
  - PRODUCT QUALITY ISSUE [None]
  - DRUG WITHDRAWAL SYNDROME [None]
  - VOMITING [None]
